FAERS Safety Report 4927983-5 (Version None)
Quarter: 2006Q1

REPORT INFORMATION
  Report Type: 
  Country: None (occurrence: None)
  Receive Date: 20060223
  Receipt Date: 20060207
  Transmission Date: 20060701
  Serious: Yes (Death, Hospitalization)
  Sender: FDA-Public Use
  Company Number: T06-GER-00010-01

PATIENT
  Age: 91 Year
  Sex: Male
  Weight: 70 kg

DRUGS (8)
  1. MEMANTINE HCL [Suspect]
     Indication: DEMENTIA ALZHEIMER'S TYPE
     Dosage: 10 MG BID PO
     Route: 048
     Dates: start: 20050101, end: 20050710
  2. MEMANTINE HCL [Suspect]
     Indication: DEMENTIA ALZHEIMER'S TYPE
     Dosage: 15 MG BID PO
     Route: 048
     Dates: start: 20041201, end: 20050101
  3. MEMANTINE HCL [Suspect]
     Indication: DEMENTIA ALZHEIMER'S TYPE
     Dosage: 5 MG BID PO
     Route: 048
     Dates: start: 20041201, end: 20041201
  4. MEMANTINE HCL [Suspect]
     Indication: DEMENTIA ALZHEIMER'S TYPE
     Dosage: 5 MG QD PO
     Route: 048
     Dates: start: 20041216, end: 20041201
  5. ENALAPRIL MALEATE [Concomitant]
  6. ACETYLSALICYLIC ACID SRT [Concomitant]
  7. DIGITOXIN TAB [Concomitant]
  8. ALLOPURINOL [Concomitant]

REACTIONS (1)
  - PNEUMONIA [None]
